FAERS Safety Report 5806950-3 (Version None)
Quarter: 2008Q3

REPORT INFORMATION
  Report Type: 
  Country: None (occurrence: None)
  Receive Date: 20080711
  Receipt Date: 20080702
  Transmission Date: 20090109
  Serious: Yes (Other)
  Sender: FDA-Public Use
  Company Number: BR-JNJFOC-20080604868

PATIENT
  Age: 83 Year
  Sex: Female

DRUGS (4)
  1. ULTRACET [Suspect]
     Indication: PAIN
     Dosage: 37.5 / 325 MG   HALF A TABLET AS NEEDED
     Route: 048
  2. SERTRALINE [Suspect]
     Indication: DEPRESSION
     Dosage: TWO 50 MG TABLETS
     Route: 048
  3. APRAZ [Concomitant]
     Indication: DRUG USE FOR UNKNOWN INDICATION
     Dosage: 2 TABLETS DAILY
     Route: 048
  4. BUSCOPAN [Concomitant]
     Indication: DRUG USE FOR UNKNOWN INDICATION
     Dosage: 1 TABLET EVERY 4 HOURS AS NEEDED
     Route: 048

REACTIONS (5)
  - DYSPNOEA [None]
  - EYELID OEDEMA [None]
  - OEDEMA PERIPHERAL [None]
  - RESPIRATORY DEPRESSION [None]
  - VISUAL IMPAIRMENT [None]
